FAERS Safety Report 16627086 (Version 2)
Quarter: 2019Q3

REPORT INFORMATION
  Report Type: Spontaneous
  Country: US (occurrence: US)
  Receive Date: 20190724
  Receipt Date: 20190830
  Transmission Date: 20191004
  Serious: No
  Sender: FDA-Public Use
  Company Number: US-SA-2019SA199044

PATIENT
  Age: 24 Year
  Sex: Female
  Weight: 67.13 kg

DRUGS (1)
  1. DUPIXENT [Suspect]
     Active Substance: DUPILUMAB
     Indication: DERMATITIS ATOPIC
     Dosage: 300 MG, QOW
     Route: 058
     Dates: start: 201812

REACTIONS (8)
  - Condition aggravated [Recovered/Resolved]
  - Erythema [Recovering/Resolving]
  - Pruritus [Recovered/Resolved]
  - Product dose omission [Unknown]
  - Dry skin [Recovered/Resolved]
  - Skin exfoliation [Unknown]
  - Eczema [Recovering/Resolving]
  - Pruritus [Recovering/Resolving]

NARRATIVE: CASE EVENT DATE: 20190727
